FAERS Safety Report 20683715 (Version 1)
Quarter: 2022Q2

REPORT INFORMATION
  Report Type: Spontaneous
  Country: US (occurrence: None)
  Receive Date: 20220405
  Receipt Date: 20220405
  Transmission Date: 20220721
  Serious: No
  Sender: FDA-Public Use
  Company Number: None

PATIENT
  Age: 20 Year
  Sex: Female

DRUGS (1)
  1. GENOTROPIN [Suspect]
     Active Substance: SOMATROPIN
     Indication: Hypopituitarism
     Dosage: FREQUENCY : ONCE;?
     Route: 058
     Dates: start: 20211108

REACTIONS (3)
  - Vomiting [None]
  - Illness [None]
  - Rash [None]

NARRATIVE: CASE EVENT DATE: 20210216
